FAERS Safety Report 4754193-7 (Version None)
Quarter: 2005Q3

REPORT INFORMATION
  Report Type: 
  Country: None (occurrence: None)
  Receive Date: 20050826
  Receipt Date: 20050816
  Transmission Date: 20060218
  Serious: Yes (Death)
  Sender: FDA-Public Use
  Company Number: 200513232BCC

PATIENT
  Age: 61 Year
  Sex: Female

DRUGS (5)
  1. PHILLIPS MILK OF MAGNESIA (MILK OF MAGNESIA) [Suspect]
     Dosage: ORAL
     Route: 048
  2. PREVACID [Concomitant]
  3. TOPROL-XL [Concomitant]
  4. LASIX [Concomitant]
  5. LIPITOR [Concomitant]

REACTIONS (3)
  - BRAIN NEOPLASM [None]
  - PHARMACEUTICAL PRODUCT COMPLAINT [None]
  - VOMITING [None]
